FAERS Safety Report 12644027 (Version 1)
Quarter: 2016Q3

REPORT INFORMATION
  Report Type: Spontaneous
  Country: CA (occurrence: CA)
  Receive Date: 20160811
  Receipt Date: 20160811
  Transmission Date: 20161109
  Serious: Yes (Other)
  Sender: FDA-Public Use
  Company Number: CA-TEVA-684003ACC

PATIENT
  Sex: Male

DRUGS (2)
  1. ZOLEDRONIC ACID INJECTION [Suspect]
     Active Substance: ZOLEDRONIC ACID
     Indication: OSTEOPOROSIS PROPHYLAXIS
     Dates: start: 20151216
  2. TERAZOSIN [Concomitant]
     Active Substance: TERAZOSIN\TERAZOSIN HYDROCHLORIDE
     Indication: URINARY INCONTINENCE

REACTIONS (3)
  - Thoracic vertebral fracture [Unknown]
  - Product substitution issue [Unknown]
  - Lumbar vertebral fracture [Unknown]
